FAERS Safety Report 7864095-5 (Version None)
Quarter: 2011Q4

REPORT INFORMATION
  Report Type: 
  Country: None (occurrence: None)
  Receive Date: 20111028
  Receipt Date: 20111017
  Transmission Date: 20120403
  Serious: Yes (Other)
  Sender: FDA-Public Use
  Company Number: US-JNJFOC-20111007074

PATIENT
  Sex: Female
  Weight: 52.16 kg

DRUGS (1)
  1. REMICADE [Suspect]
     Indication: RHEUMATOID ARTHRITIS
     Route: 042
     Dates: start: 20110926

REACTIONS (8)
  - NERVOUS SYSTEM DISORDER [None]
  - ABASIA [None]
  - IMPAIRED WORK ABILITY [None]
  - DIPLEGIA [None]
  - ARTHRALGIA [None]
  - PARAESTHESIA [None]
  - HYPOAESTHESIA [None]
  - PAIN [None]
